FAERS Safety Report 15837985 (Version 1)
Quarter: 2019Q1

REPORT INFORMATION
  Report Type: Spontaneous
  Country: GB (occurrence: GB)
  Receive Date: 20190117
  Receipt Date: 20190117
  Transmission Date: 20190417
  Serious: Yes (Other)
  Sender: FDA-Public Use
  Company Number: GB-GLAXOSMITHKLINE-GB2018GSK216987

PATIENT
  Age: 8 Decade
  Sex: Male

DRUGS (4)
  1. ACITRETIN. [Suspect]
     Active Substance: ACITRETIN
     Indication: SKIN CANCER
     Dosage: UNK
     Route: 065
     Dates: start: 2013, end: 201502
  2. CICLOSPORIN [Suspect]
     Active Substance: CYCLOSPORINE
     Indication: IMMUNOSUPPRESSANT DRUG THERAPY
     Dosage: 150 MG, UNK (75 MG,1 IN 0.5 D)
     Route: 065
     Dates: start: 2013
  3. MYCOPHENOLATE MOFETIL. [Suspect]
     Active Substance: MYCOPHENOLATE MOFETIL
     Indication: IMMUNOSUPPRESSANT DRUG THERAPY
     Dosage: 1000 MG, UNK (500 MG,1 IN 0.5 D)
     Route: 065
  4. SIROLIMUS. [Interacting]
     Active Substance: SIROLIMUS
     Indication: SKIN CANCER
     Dosage: 2 MG, 1D EVERY MORNING
     Route: 065
     Dates: start: 201502

REACTIONS (4)
  - Drug interaction [Unknown]
  - Impaired healing [Recovering/Resolving]
  - Skin erosion [Unknown]
  - Squamous cell carcinoma of skin [Recovered/Resolved]

NARRATIVE: CASE EVENT DATE: 2013
